FAERS Safety Report 5859097-4 (Version None)
Quarter: 2008Q3

REPORT INFORMATION
  Report Type: 
  Country: None (occurrence: None)
  Receive Date: 20080825
  Receipt Date: 20080814
  Transmission Date: 20090109
  Serious: Yes (Hospitalization, Other)
  Sender: FDA-Public Use
  Company Number: GXKR2008SE07691

PATIENT
  Age: 18 Year
  Sex: Male

DRUGS (5)
  1. PREDNISOLONE [Suspect]
     Indication: COLITIS ULCERATIVE
     Dosage: 40 MG, QD; 10 MG, QD
  2. HEPARIN [Suspect]
     Indication: CEREBRAL VENOUS THROMBOSIS
     Dosage: 5000 IU, INTRAVENOUS; 27 IU/KG, QH, INFUSION
     Route: 042
  3. AZATHIOPRINE [Concomitant]
  4. OLSALAZINE (OLSALAZINE) [Concomitant]
  5. WARFARIN SODIUM [Concomitant]

REACTIONS (15)
  - ANTI-PLATELET ANTIBODY POSITIVE [None]
  - BENIGN INTRACRANIAL HYPERTENSION [None]
  - CEREBRAL VENOUS THROMBOSIS [None]
  - DECREASED APPETITE [None]
  - DEHYDRATION [None]
  - FIBRIN D DIMER INCREASED [None]
  - HEADACHE [None]
  - HEPARIN-INDUCED THROMBOCYTOPENIA [None]
  - IRON DEFICIENCY ANAEMIA [None]
  - NAUSEA [None]
  - PAPILLOEDEMA [None]
  - PERITONSILLITIS [None]
  - UPPER RESPIRATORY TRACT INFECTION [None]
  - VOMITING [None]
  - WEIGHT DECREASED [None]
